FAERS Safety Report 8508858-1 (Version None)
Quarter: 2012Q3

REPORT INFORMATION
  Report Type: 
  Country: None (occurrence: None)
  Receive Date: 20120713
  Receipt Date: 20120709
  Transmission Date: 20120928
  Serious: Yes (Other)
  Sender: FDA-Public Use
  Company Number: PHHY2012FR059819

PATIENT
  Sex: Female

DRUGS (10)
  1. LEVOTHYROXINE SODIUM [Concomitant]
  2. CORDARONE [Concomitant]
     Dosage: UNK
     Dates: start: 20120101
  3. FLECAINIDE ACETATE [Concomitant]
     Dosage: UNK
     Dates: end: 20120101
  4. SULFARLEM [Concomitant]
  5. BISOPROLOL FUMARATE [Concomitant]
     Dates: start: 20120101
  6. ESOMEPRAZOLE [Concomitant]
     Dates: start: 20120101
  7. POTASSIUM CHLORIDE [Concomitant]
     Dates: start: 20120101
  8. ZOLEDRONOC ACID [Suspect]
     Indication: OSTEOPOROSIS
     Route: 042
     Dates: start: 20110901
  9. PREVISCAN [Concomitant]
  10. FLUVOXAMINE [Concomitant]

REACTIONS (2)
  - CEREBROVASCULAR ACCIDENT [None]
  - PNEUMONIA [None]
